FAERS Safety Report 24115752 (Version 1)
Quarter: 2024Q3

REPORT INFORMATION
  Report Type: Spontaneous
  Country: ZA (occurrence: ZA)
  Receive Date: 20240721
  Receipt Date: 20240721
  Transmission Date: 20241017
  Serious: Yes (Other)
  Sender: BAYER
  Company Number: ZA-BAYER-2024A100968

PATIENT
  Age: 45 Year
  Sex: Female

DRUGS (15)
  1. DROSPIRENONE\ETHINYL ESTRADIOL\LEVOMEFOLATE CALCIUM [Suspect]
     Active Substance: DROSPIRENONE\ETHINYL ESTRADIOL\LEVOMEFOLATE CALCIUM
     Indication: Contraception
     Dosage: 1 DF, QD
     Route: 048
  2. IBUMOL [Concomitant]
     Indication: Pain
     Dosage: UNK UNK, TID
     Route: 048
  3. MELOXICAM [Concomitant]
     Active Substance: MELOXICAM
     Indication: Pain
     Dosage: 15 MG, QD
     Route: 048
  4. MELOXICAM [Concomitant]
     Active Substance: MELOXICAM
     Indication: Inflammation
  5. MELOXICAM [Concomitant]
     Active Substance: MELOXICAM
     Indication: Arthritis
  6. DILINCT [Concomitant]
     Dosage: UNK UNK, TID
     Route: 048
  7. BENYLIN FOUR FLU [Concomitant]
     Dosage: 20 ML, QID
     Route: 048
  8. Coryx [Concomitant]
     Dosage: 1 DF, TID
     Route: 048
  9. PREDNISONE [Concomitant]
     Active Substance: PREDNISONE
     Dosage: 5 MG, QID
     Route: 048
  10. ZILFONE [Concomitant]
     Indication: Hypersensitivity
     Dosage: 4 PUFF(S), QD
     Route: 045
  11. TRANIC [Concomitant]
     Dosage: 2 DF, TID
     Route: 048
  12. Tussmuco [Concomitant]
     Dosage: 200 MG, TID
     Route: 048
  13. TRAMADOL HYDROCHLORIDE [Concomitant]
     Active Substance: TRAMADOL HYDROCHLORIDE
     Indication: Pain
     Dosage: 50 MG, BID
     Route: 048
  14. ELOCON [Concomitant]
     Active Substance: MOMETASONE FUROATE
     Indication: Dermatitis allergic
     Dosage: 0.1 %, BID
     Route: 061
  15. Glovireg [Concomitant]
     Indication: Pain
     Dosage: 1 DF, QD
     Route: 048

REACTIONS (1)
  - Tonsillitis [None]
